FAERS Safety Report 9178866 (Version 1)
Quarter: 2012Q4

REPORT INFORMATION
  Report Type: 
  Country: US (occurrence: US)
  Receive Date: 20121029
  Receipt Date: 20121029
  Transmission Date: 20130627
  Serious: No
  Sender: FDA-Public Use
  Company Number: US-AMGEN-USASP2012052969

PATIENT
  Age: 71 Year
  Sex: Female
  Weight: 46.36 kg

DRUGS (5)
  1. ENBREL [Suspect]
     Indication: PRODUCT USED FOR UNKNOWN INDICATION
     Dosage: 50 mg, qwk
     Route: 058
  2. RELAFEN [Concomitant]
     Dosage: 750 mg, UNK
  3. METOPROLOL [Concomitant]
     Dosage: 100 mg, UNK
  4. METANX [Concomitant]
  5. METHOTREXATE [Concomitant]
     Dosage: 25 mg/ML,

REACTIONS (2)
  - Cellulitis [Unknown]
  - Spinal column stenosis [Unknown]
